FAERS Safety Report 4614082-5 (Version None)
Quarter: 2005Q1

REPORT INFORMATION
  Report Type: 
  Country: None (occurrence: None)
  Receive Date: 20050316
  Receipt Date: 20050224
  Transmission Date: 20050727
  Serious: Yes (Death, Hospitalization, Other)
  Sender: FDA-Public Use
  Company Number: CA_050107645

PATIENT
  Age: 33 Year
  Sex: Male

DRUGS (2)
  1. ZYPREXA [Suspect]
     Indication: AGITATION
     Dosage: 10 MG
     Dates: start: 20021201, end: 20030601
  2. PAXIL [Concomitant]

REACTIONS (3)
  - BRAIN OEDEMA [None]
  - FEAR [None]
  - STATUS EPILEPTICUS [None]
